FAERS Safety Report 24671656 (Version 8)
Quarter: 2025Q4

REPORT INFORMATION
  Report Type: Spontaneous
  Country: CA (occurrence: CA)
  Receive Date: 20241127
  Receipt Date: 20251226
  Transmission Date: 20260117
  Serious: Yes (Life-Threatening, Hospitalization, Disabling, Other)
  Sender: BRISTOL-MYERS SQUIBB COMPANY
  Company Number: CA-BRISTOL-MYERS SQUIBB COMPANY-2024-179801

PATIENT
  Age: 44 Year
  Sex: Female

DRUGS (364)
  1. ORENCIA [Suspect]
     Active Substance: ABATACEPT
     Indication: Rheumatoid arthritis
     Route: 058
  2. ORENCIA [Suspect]
     Active Substance: ABATACEPT
     Route: 058
  3. ORENCIA [Suspect]
     Active Substance: ABATACEPT
     Route: 058
  4. ORENCIA [Suspect]
     Active Substance: ABATACEPT
     Indication: Rheumatoid arthritis
     Route: 042
  5. TRIAMCINOLONE ACETONIDE [Suspect]
     Active Substance: TRIAMCINOLONE ACETONIDE
     Indication: Rheumatoid arthritis
     Dosage: SUSPENSION INTRA- ARTICULAR
     Route: 014
  6. ORENCIA [Suspect]
     Active Substance: ABATACEPT
     Indication: Rheumatoid arthritis
     Route: 015
  7. DICLOFENAC SODIUM [Concomitant]
     Active Substance: DICLOFENAC SODIUM
     Indication: Product used for unknown indication
  8. DICLOFENAC SODIUM [Concomitant]
     Active Substance: DICLOFENAC SODIUM
     Dosage: SOLUTION OPHTHALMIC
     Route: 047
  9. ACETAMINOPHEN [Concomitant]
     Active Substance: ACETAMINOPHEN
     Indication: Rheumatoid arthritis
  10. ACETAMINOPHEN [Concomitant]
     Active Substance: ACETAMINOPHEN
  11. ACETAMINOPHEN [Concomitant]
     Active Substance: ACETAMINOPHEN
     Route: 047
  12. ACETAMINOPHEN [Concomitant]
     Active Substance: ACETAMINOPHEN
     Route: 048
  13. ACETAMINOPHEN [Concomitant]
     Active Substance: ACETAMINOPHEN
     Route: 058
  14. ACETAMINOPHEN [Concomitant]
     Active Substance: ACETAMINOPHEN
  15. ACTEMRA [Concomitant]
     Active Substance: TOCILIZUMAB
     Indication: Rheumatoid arthritis
     Route: 042
  16. ACTEMRA [Concomitant]
     Active Substance: TOCILIZUMAB
     Route: 058
  17. ACTEMRA [Concomitant]
     Active Substance: TOCILIZUMAB
     Route: 042
  18. ACTEMRA [Concomitant]
     Active Substance: TOCILIZUMAB
     Route: 042
  19. ACTEMRA [Concomitant]
     Active Substance: TOCILIZUMAB
     Route: 042
  20. ACTEMRA [Concomitant]
     Active Substance: TOCILIZUMAB
     Route: 042
  21. ACTEMRA [Concomitant]
     Active Substance: TOCILIZUMAB
     Route: 042
  22. ACTEMRA [Concomitant]
     Active Substance: TOCILIZUMAB
     Route: 042
  23. ACTEMRA [Concomitant]
     Active Substance: TOCILIZUMAB
     Route: 042
  24. ACTEMRA [Concomitant]
     Active Substance: TOCILIZUMAB
     Route: 042
  25. ACTEMRA [Concomitant]
     Active Substance: TOCILIZUMAB
     Route: 042
  26. ACTEMRA [Concomitant]
     Active Substance: TOCILIZUMAB
     Route: 042
  27. ACTEMRA [Concomitant]
     Active Substance: TOCILIZUMAB
     Route: 042
  28. ACTEMRA [Concomitant]
     Active Substance: TOCILIZUMAB
     Route: 058
  29. ACTEMRA [Concomitant]
     Active Substance: TOCILIZUMAB
     Route: 042
  30. ACTEMRA [Concomitant]
     Active Substance: TOCILIZUMAB
     Route: 058
  31. ACTEMRA [Concomitant]
     Active Substance: TOCILIZUMAB
     Route: 042
  32. ACTEMRA [Concomitant]
     Active Substance: TOCILIZUMAB
     Route: 042
  33. ACTEMRA [Concomitant]
     Active Substance: TOCILIZUMAB
     Route: 042
  34. ACTEMRA [Concomitant]
     Active Substance: TOCILIZUMAB
  35. ACTEMRA [Concomitant]
     Active Substance: TOCILIZUMAB
     Route: 048
  36. ACTEMRA [Concomitant]
     Active Substance: TOCILIZUMAB
  37. ADALIMUMAB [Concomitant]
     Active Substance: ADALIMUMAB
     Indication: Psoriatic arthropathy
     Dosage: SOLUTION SUBCUTANEOUS
     Route: 048
  38. ADALIMUMAB [Concomitant]
     Active Substance: ADALIMUMAB
     Route: 058
  39. ALENDRONATE SODIUM [Concomitant]
     Active Substance: ALENDRONATE SODIUM
     Indication: Rheumatoid arthritis
     Route: 048
  40. ALENDRONATE SODIUM [Concomitant]
     Active Substance: ALENDRONATE SODIUM
     Route: 048
  41. ALENDRONATE SODIUM [Concomitant]
     Active Substance: ALENDRONATE SODIUM
     Route: 048
  42. ALENDRONATE SODIUM [Concomitant]
     Active Substance: ALENDRONATE SODIUM
  43. PREDNISONE [Concomitant]
     Active Substance: PREDNISONE
     Indication: Rheumatoid arthritis
     Route: 048
  44. PREDNISONE [Concomitant]
     Active Substance: PREDNISONE
  45. PREDNISONE [Concomitant]
     Active Substance: PREDNISONE
     Route: 042
  46. PREDNISONE [Concomitant]
     Active Substance: PREDNISONE
     Route: 048
  47. ARAVA [Concomitant]
     Active Substance: LEFLUNOMIDE
     Indication: Rheumatoid arthritis
     Route: 048
  48. ARAVA [Concomitant]
     Active Substance: LEFLUNOMIDE
  49. ARAVA [Concomitant]
     Active Substance: LEFLUNOMIDE
     Route: 048
  50. BORAGE OIL [Concomitant]
     Active Substance: BORAGE OIL
     Indication: Product used for unknown indication
  51. CALCIUM CARBONATE [Concomitant]
     Active Substance: CALCIUM CARBONATE
     Indication: Product used for unknown indication
  52. CALCIUM GLUBIONATE [Concomitant]
     Active Substance: CALCIUM GLUBIONATE
     Indication: Product used for unknown indication
  53. CELEBREX [Concomitant]
     Active Substance: CELECOXIB
     Indication: Product used for unknown indication
     Route: 048
  54. CELECOXIB [Concomitant]
     Active Substance: CELECOXIB
     Indication: Product used for unknown indication
  55. CELECOXIB [Concomitant]
     Active Substance: CELECOXIB
  56. CELECOXIB [Concomitant]
     Active Substance: CELECOXIB
  57. CELECOXIB [Concomitant]
     Active Substance: CELECOXIB
  58. CELECOXIB [Concomitant]
     Active Substance: CELECOXIB
  59. CETIRIZINE [Concomitant]
     Active Substance: CETIRIZINE HYDROCHLORIDE
     Indication: Rheumatoid arthritis
     Route: 048
  60. CETIRIZINE [Concomitant]
     Active Substance: CETIRIZINE HYDROCHLORIDE
     Route: 048
  61. CETIRIZINE [Concomitant]
     Active Substance: CETIRIZINE HYDROCHLORIDE
  62. CETIRIZINE [Concomitant]
     Active Substance: CETIRIZINE HYDROCHLORIDE
     Route: 016
  63. CETIRIZINE [Concomitant]
     Active Substance: CETIRIZINE HYDROCHLORIDE
  64. CHLORAPREP [Concomitant]
     Active Substance: CHLORHEXIDINE GLUCONATE\ISOPROPYL ALCOHOL
     Indication: Product used for unknown indication
  65. CHLORHEXIDINE [Concomitant]
     Active Substance: CHLORHEXIDINE
     Indication: Product used for unknown indication
     Route: 002
  66. CHLORHEXIDINE [Concomitant]
     Active Substance: CHLORHEXIDINE
     Route: 048
  67. CHLORHEXIDINE [Concomitant]
     Active Substance: CHLORHEXIDINE
  68. CHLORHEXIDINE [Concomitant]
     Active Substance: CHLORHEXIDINE
  69. CHLORHEXIDINE GLUCONATE\ISOPROPYL ALCOHOL [Concomitant]
     Active Substance: CHLORHEXIDINE GLUCONATE\ISOPROPYL ALCOHOL
     Indication: Product used for unknown indication
  70. CHLORHEXIDINE GLUCONATE\ISOPROPYL ALCOHOL [Concomitant]
     Active Substance: CHLORHEXIDINE GLUCONATE\ISOPROPYL ALCOHOL
     Route: 016
  71. CHLORHEXIDINE GLUCONATE\ISOPROPYL ALCOHOL [Concomitant]
     Active Substance: CHLORHEXIDINE GLUCONATE\ISOPROPYL ALCOHOL
     Route: 048
  72. CHLORHEXIDINE GLUCONATE\ISOPROPYL ALCOHOL [Concomitant]
     Active Substance: CHLORHEXIDINE GLUCONATE\ISOPROPYL ALCOHOL
     Route: 002
  73. CHOLECALCIFEROL [Concomitant]
     Active Substance: CHOLECALCIFEROL
     Indication: Product used for unknown indication
  74. CIMZIA [Concomitant]
     Active Substance: CERTOLIZUMAB PEGOL
     Indication: Rheumatoid arthritis
     Route: 058
  75. CIMZIA [Concomitant]
     Active Substance: CERTOLIZUMAB PEGOL
     Route: 058
  76. CIMZIA [Concomitant]
     Active Substance: CERTOLIZUMAB PEGOL
  77. CIMZIA [Concomitant]
     Active Substance: CERTOLIZUMAB PEGOL
     Route: 058
  78. CIMZIA [Concomitant]
     Active Substance: CERTOLIZUMAB PEGOL
     Route: 058
  79. CIMZIA [Concomitant]
     Active Substance: CERTOLIZUMAB PEGOL
     Route: 058
  80. CIMZIA [Concomitant]
     Active Substance: CERTOLIZUMAB PEGOL
     Route: 058
  81. CIMZIA [Concomitant]
     Active Substance: CERTOLIZUMAB PEGOL
  82. CIMZIA [Concomitant]
     Active Substance: CERTOLIZUMAB PEGOL
     Route: 058
  83. HYDROCORTISONE ACETATE [Concomitant]
     Active Substance: HYDROCORTISONE ACETATE
     Indication: Rheumatoid arthritis
  84. HYDROCORTISONE ACETATE [Concomitant]
     Active Substance: HYDROCORTISONE ACETATE
     Route: 048
  85. CORTISONE ACETATE [Concomitant]
     Active Substance: CORTISONE ACETATE
     Indication: Rheumatoid arthritis
  86. CORTISONE ACETATE [Concomitant]
     Active Substance: CORTISONE ACETATE
     Route: 048
  87. COSENTYX [Concomitant]
     Active Substance: SECUKINUMAB
     Indication: Rheumatoid arthritis
     Route: 005
  88. COSENTYX [Concomitant]
     Active Substance: SECUKINUMAB
     Indication: Psoriatic arthropathy
  89. COSENTYX [Concomitant]
     Active Substance: SECUKINUMAB
  90. DESOXIMETASONE [Concomitant]
     Active Substance: DESOXIMETASONE
     Indication: Rheumatoid arthritis
     Route: 048
  91. DESOXIMETASONE [Concomitant]
     Active Substance: DESOXIMETASONE
     Route: 003
  92. DESOXIMETASONE [Concomitant]
     Active Substance: DESOXIMETASONE
     Route: 058
  93. DESOXIMETASONE [Concomitant]
     Active Substance: DESOXIMETASONE
  94. DESOXIMETASONE [Concomitant]
     Active Substance: DESOXIMETASONE
     Route: 048
  95. DESOXIMETASONE [Concomitant]
     Active Substance: DESOXIMETASONE
     Route: 048
  96. DESOXIMETASONE [Concomitant]
     Active Substance: DESOXIMETASONE
     Route: 003
  97. DESOXIMETASONE [Concomitant]
     Active Substance: DESOXIMETASONE
  98. DESOXIMETASONE [Concomitant]
     Active Substance: DESOXIMETASONE
     Route: 058
  99. DESOXIMETASONE [Concomitant]
     Active Substance: DESOXIMETASONE
     Route: 048
  100. DESOXIMETASONE [Concomitant]
     Active Substance: DESOXIMETASONE
     Route: 048
  101. DESOXIMETASONE [Concomitant]
     Active Substance: DESOXIMETASONE
     Route: 048
  102. DESOXIMETASONE [Concomitant]
     Active Substance: DESOXIMETASONE
     Route: 058
  103. DESOXIMETASONE [Concomitant]
     Active Substance: DESOXIMETASONE
  104. DESOXIMETASONE [Concomitant]
     Active Substance: DESOXIMETASONE
     Route: 048
  105. DESOXIMETASONE [Concomitant]
     Active Substance: DESOXIMETASONE
  106. DICLOFENAC POTASSIUM [Concomitant]
     Active Substance: DICLOFENAC POTASSIUM
     Indication: Product used for unknown indication
     Route: 048
  107. DICLOFENAC POTASSIUM [Concomitant]
     Active Substance: DICLOFENAC POTASSIUM
     Route: 058
  108. DICLOFENAC POTASSIUM [Concomitant]
     Active Substance: DICLOFENAC POTASSIUM
  109. DICLOFENAC POTASSIUM [Concomitant]
     Active Substance: DICLOFENAC POTASSIUM
     Route: 047
  110. DICLOFENAC POTASSIUM [Concomitant]
     Active Substance: DICLOFENAC POTASSIUM
     Route: 048
  111. DICLOFENAC SODIUM [Concomitant]
     Active Substance: DICLOFENAC SODIUM
     Indication: Product used for unknown indication
     Route: 048
  112. DICLOFENAC SODIUM [Concomitant]
     Active Substance: DICLOFENAC SODIUM
  113. DICLOFENAC SODIUM [Concomitant]
     Active Substance: DICLOFENAC SODIUM
     Route: 058
  114. DICLOFENAC SODIUM [Concomitant]
     Active Substance: DICLOFENAC SODIUM
     Route: 047
  115. DICLOFENAC SODIUM [Concomitant]
     Active Substance: DICLOFENAC SODIUM
  116. DOXYCYCLINE HYCLATE [Concomitant]
     Active Substance: DOXYCYCLINE HYCLATE
     Indication: Product used for unknown indication
  117. ENBREL [Concomitant]
     Active Substance: ETANERCEPT
     Indication: Rheumatoid arthritis
     Route: 058
  118. ENBREL [Concomitant]
     Active Substance: ETANERCEPT
     Indication: Psoriatic arthropathy
     Route: 058
  119. ENBREL [Concomitant]
     Active Substance: ETANERCEPT
     Route: 058
  120. ENBREL [Concomitant]
     Active Substance: ETANERCEPT
     Route: 058
  121. ENBREL [Concomitant]
     Active Substance: ETANERCEPT
  122. ENBREL [Concomitant]
     Active Substance: ETANERCEPT
     Route: 048
  123. ENBREL [Concomitant]
     Active Substance: ETANERCEPT
  124. ENBREL [Concomitant]
     Active Substance: ETANERCEPT
     Route: 058
  125. ERELZI [Concomitant]
     Active Substance: ETANERCEPT-SZZS
     Indication: Rheumatoid arthritis
     Route: 058
  126. ERELZI [Concomitant]
     Active Substance: ETANERCEPT-SZZS
     Route: 058
  127. ERELZI [Concomitant]
     Active Substance: ETANERCEPT-SZZS
  128. FLUMETHASONE PIVALATE [Concomitant]
     Active Substance: FLUMETHASONE PIVALATE
     Indication: Rheumatoid arthritis
     Route: 058
  129. FOLIC ACID [Concomitant]
     Active Substance: FOLIC ACID
     Indication: Rheumatoid arthritis
  130. FOLIC ACID [Concomitant]
     Active Substance: FOLIC ACID
     Route: 048
  131. FOLIC ACID [Concomitant]
     Active Substance: FOLIC ACID
     Route: 048
  132. FOLIC ACID [Concomitant]
     Active Substance: FOLIC ACID
     Route: 048
  133. FOLIC ACID [Concomitant]
     Active Substance: FOLIC ACID
     Route: 048
  134. FOLIC ACID [Concomitant]
     Active Substance: FOLIC ACID
     Route: 048
  135. FOLIC ACID [Concomitant]
     Active Substance: FOLIC ACID
     Route: 048
  136. FOLIC ACID [Concomitant]
     Active Substance: FOLIC ACID
     Route: 048
  137. FOLIC ACID [Concomitant]
     Active Substance: FOLIC ACID
     Route: 048
  138. FOLIC ACID [Concomitant]
     Active Substance: FOLIC ACID
     Route: 048
  139. FOLIC ACID [Concomitant]
     Active Substance: FOLIC ACID
  140. FOLIC ACID [Concomitant]
     Active Substance: FOLIC ACID
  141. FOLIC ACID [Concomitant]
     Active Substance: FOLIC ACID
  142. FOSAMAX [Concomitant]
     Active Substance: ALENDRONATE SODIUM
     Indication: Rheumatoid arthritis
     Route: 048
  143. FOSAMAX [Concomitant]
     Active Substance: ALENDRONATE SODIUM
  144. FOSAMAX [Concomitant]
     Active Substance: ALENDRONATE SODIUM
     Route: 048
  145. FOSAMAX [Concomitant]
     Active Substance: ALENDRONATE SODIUM
     Route: 048
  146. GRAMICIDIN\POLYMYXIN B [Concomitant]
     Active Substance: GRAMICIDIN\POLYMYXIN B
     Indication: Product used for unknown indication
  147. HUMIRA [Concomitant]
     Active Substance: ADALIMUMAB
     Indication: Rheumatoid arthritis
     Dosage: SOLUTION SUBCUTANEOUS
     Route: 058
  148. HUMIRA [Concomitant]
     Active Substance: ADALIMUMAB
     Indication: Psoriatic arthropathy
     Route: 058
  149. HUMIRA [Concomitant]
     Active Substance: ADALIMUMAB
     Route: 058
  150. HUMIRA [Concomitant]
     Active Substance: ADALIMUMAB
     Dosage: SOLUTION SUBCUTANEOUS
     Route: 058
  151. HUMIRA [Concomitant]
     Active Substance: ADALIMUMAB
     Dosage: SOLUTION SUBCUTANEOUS
     Route: 058
  152. HUMIRA [Concomitant]
     Active Substance: ADALIMUMAB
  153. HYDROCORTISONE [Concomitant]
     Active Substance: HYDROCORTISONE
     Indication: Rheumatoid arthritis
     Route: 058
  154. HYDROCORTISONE [Concomitant]
     Active Substance: HYDROCORTISONE
     Route: 048
  155. HYDROCORTISONE [Concomitant]
     Active Substance: HYDROCORTISONE
  156. HYDROCORTISONE [Concomitant]
     Active Substance: HYDROCORTISONE
  157. HYDROCORTISONE [Concomitant]
     Active Substance: HYDROCORTISONE
     Route: 003
  158. HYDROCORTISONE [Concomitant]
     Active Substance: HYDROCORTISONE
     Route: 058
  159. HYDROCORTISONE [Concomitant]
     Active Substance: HYDROCORTISONE
     Route: 048
  160. HYDROCORTISONE PROBUTATE [Concomitant]
     Active Substance: HYDROCORTISONE PROBUTATE
     Indication: Rheumatoid arthritis
     Route: 003
  161. HYDROCORTISONE SODIUM SUCCINATE [Concomitant]
     Active Substance: HYDROCORTISONE SODIUM SUCCINATE
     Indication: Rheumatoid arthritis
     Route: 048
  162. HYDROXYCHLOROQUINE SULFATE [Concomitant]
     Active Substance: HYDROXYCHLOROQUINE SULFATE
     Indication: Systemic lupus erythematosus
     Route: 058
  163. HYDROXYCHLOROQUINE SULFATE [Concomitant]
     Active Substance: HYDROXYCHLOROQUINE SULFATE
     Indication: Rheumatoid arthritis
     Route: 048
  164. HYDROXYCHLOROQUINE SULFATE [Concomitant]
     Active Substance: HYDROXYCHLOROQUINE SULFATE
     Route: 048
  165. HYDROXYCHLOROQUINE SULFATE [Concomitant]
     Active Substance: HYDROXYCHLOROQUINE SULFATE
     Route: 048
  166. HYDROXYCHLOROQUINE SULFATE [Concomitant]
     Active Substance: HYDROXYCHLOROQUINE SULFATE
     Route: 058
  167. HYDROXYCHLOROQUINE SULFATE [Concomitant]
     Active Substance: HYDROXYCHLOROQUINE SULFATE
     Route: 058
  168. HYDROXYCHLOROQUINE SULFATE [Concomitant]
     Active Substance: HYDROXYCHLOROQUINE SULFATE
  169. HYDROXYCHLOROQUINE SULFATE [Concomitant]
     Active Substance: HYDROXYCHLOROQUINE SULFATE
     Route: 048
  170. HYDROXYCHLOROQUINE SULFATE [Concomitant]
     Active Substance: HYDROXYCHLOROQUINE SULFATE
     Route: 048
  171. HYDROXYCHLOROQUINE SULFATE [Concomitant]
     Active Substance: HYDROXYCHLOROQUINE SULFATE
     Route: 048
  172. HYDROXYCHLOROQUINE SULFATE [Concomitant]
     Active Substance: HYDROXYCHLOROQUINE SULFATE
  173. HYDROXYCHLOROQUINE SULFATE [Concomitant]
     Active Substance: HYDROXYCHLOROQUINE SULFATE
  174. INFLIXIMAB [Concomitant]
     Active Substance: INFLIXIMAB
     Indication: Rheumatoid arthritis
  175. INFLIXIMAB [Concomitant]
     Active Substance: INFLIXIMAB
     Route: 042
  176. INFLIXIMAB [Concomitant]
     Active Substance: INFLIXIMAB
     Route: 042
  177. ISOPROPYL ALCOHOL [Concomitant]
     Active Substance: ISOPROPYL ALCOHOL
     Indication: Product used for unknown indication
     Dosage: LIQUID TOPICAL
  178. LEFLUNOMIDE [Concomitant]
     Active Substance: LEFLUNOMIDE
     Indication: Rheumatoid arthritis
     Route: 048
  179. LEFLUNOMIDE [Concomitant]
     Active Substance: LEFLUNOMIDE
  180. LEFLUNOMIDE [Concomitant]
     Active Substance: LEFLUNOMIDE
     Route: 048
  181. LEFLUNOMIDE [Concomitant]
     Active Substance: LEFLUNOMIDE
  182. LYRICA [Concomitant]
     Active Substance: PREGABALIN
     Indication: Product used for unknown indication
  183. METHOTREXATE [Concomitant]
     Active Substance: METHOTREXATE
     Indication: Rheumatoid arthritis
     Route: 048
  184. METHOTREXATE [Concomitant]
     Active Substance: METHOTREXATE
     Route: 048
  185. METHOTREXATE [Concomitant]
     Active Substance: METHOTREXATE
     Route: 048
  186. METHOTREXATE [Concomitant]
     Active Substance: METHOTREXATE
     Route: 048
  187. METHOTREXATE [Concomitant]
     Active Substance: METHOTREXATE
     Route: 048
  188. METHOTREXATE [Concomitant]
     Active Substance: METHOTREXATE
     Route: 048
  189. METHOTREXATE [Concomitant]
     Active Substance: METHOTREXATE
     Route: 013
  190. METHOTREXATE [Concomitant]
     Active Substance: METHOTREXATE
     Route: 058
  191. METHOTREXATE [Concomitant]
     Active Substance: METHOTREXATE
     Route: 048
  192. METHOTREXATE [Concomitant]
     Active Substance: METHOTREXATE
     Route: 058
  193. METHOTREXATE [Concomitant]
     Active Substance: METHOTREXATE
     Route: 058
  194. METHOTREXATE [Concomitant]
     Active Substance: METHOTREXATE
     Route: 058
  195. METHOTREXATE [Concomitant]
     Active Substance: METHOTREXATE
     Route: 058
  196. METHOTREXATE [Concomitant]
     Active Substance: METHOTREXATE
     Route: 048
  197. METHOTREXATE [Concomitant]
     Active Substance: METHOTREXATE
     Route: 048
  198. METHOTREXATE [Concomitant]
     Active Substance: METHOTREXATE
  199. METHOTREXATE [Concomitant]
     Active Substance: METHOTREXATE
     Route: 048
  200. METHOTREXATE [Concomitant]
     Active Substance: METHOTREXATE
  201. METHOTREXATE [Concomitant]
     Active Substance: METHOTREXATE
     Route: 048
  202. METHOTREXATE [Concomitant]
     Active Substance: METHOTREXATE
     Route: 048
  203. METHOTREXATE [Concomitant]
     Active Substance: METHOTREXATE
     Route: 048
  204. METHOTREXATE [Concomitant]
     Active Substance: METHOTREXATE
     Route: 058
  205. METHOTREXATE [Concomitant]
     Active Substance: METHOTREXATE
     Route: 048
  206. METHOTREXATE [Concomitant]
     Active Substance: METHOTREXATE
     Route: 048
  207. METHOTREXATE [Concomitant]
     Active Substance: METHOTREXATE
     Route: 048
  208. METHOTREXATE [Concomitant]
     Active Substance: METHOTREXATE
     Route: 058
  209. METHOTREXATE [Concomitant]
     Active Substance: METHOTREXATE
     Route: 058
  210. METHOTREXATE [Concomitant]
     Active Substance: METHOTREXATE
     Route: 058
  211. METHOTREXATE [Concomitant]
     Active Substance: METHOTREXATE
     Route: 013
  212. METHOTREXATE [Concomitant]
     Active Substance: METHOTREXATE
  213. METHOTREXATE [Concomitant]
     Active Substance: METHOTREXATE
  214. METHOTREXATE [Concomitant]
     Active Substance: METHOTREXATE
     Route: 048
  215. METHOTREXATE [Concomitant]
     Active Substance: METHOTREXATE
     Route: 048
  216. METHOTREXATE [Concomitant]
     Active Substance: METHOTREXATE
  217. METHOTREXATE [Concomitant]
     Active Substance: METHOTREXATE
     Route: 048
  218. METHOTREXATE [Concomitant]
     Active Substance: METHOTREXATE
     Route: 048
  219. METHOTREXATE [Concomitant]
     Active Substance: METHOTREXATE
  220. METHOTREXATE [Concomitant]
     Active Substance: METHOTREXATE
     Route: 058
  221. METHOTREXATE [Concomitant]
     Active Substance: METHOTREXATE
     Route: 048
  222. MYCOPHENOLATE MOFETIL [Concomitant]
     Active Substance: MYCOPHENOLATE MOFETIL
     Indication: Product used for unknown indication
  223. NAPROXEN SODIUM [Concomitant]
     Active Substance: NAPROXEN SODIUM
     Indication: Rheumatoid arthritis
  224. NAPROXEN SODIUM [Concomitant]
     Active Substance: NAPROXEN SODIUM
  225. NEOMYCIN [Concomitant]
     Active Substance: NEOMYCIN
     Indication: Product used for unknown indication
  226. OTEZLA [Concomitant]
     Active Substance: APREMILAST
     Indication: Rheumatoid arthritis
     Route: 042
  227. OTEZLA [Concomitant]
     Active Substance: APREMILAST
     Route: 048
  228. OTEZLA [Concomitant]
     Active Substance: APREMILAST
     Route: 048
  229. OXYCODONE [Concomitant]
     Active Substance: OXYCODONE
     Indication: Product used for unknown indication
  230. OXYCODONE TEREPHTHALATE [Concomitant]
     Active Substance: OXYCODONE TEREPHTHALATE
     Indication: Product used for unknown indication
     Route: 016
  231. PHTHALYLSULFATHIAZOLE [Concomitant]
     Active Substance: PHTHALYLSULFATHIAZOLE
     Indication: Rheumatoid arthritis
  232. PHTHALYLSULFATHIAZOLE [Concomitant]
     Active Substance: PHTHALYLSULFATHIAZOLE
     Route: 016
  233. PHTHALYLSULFATHIAZOLE [Concomitant]
     Active Substance: PHTHALYLSULFATHIAZOLE
     Route: 042
  234. PHTHALYLSULFATHIAZOLE [Concomitant]
     Active Substance: PHTHALYLSULFATHIAZOLE
     Route: 048
  235. PHTHALYLSULFATHIAZOLE [Concomitant]
     Active Substance: PHTHALYLSULFATHIAZOLE
     Route: 048
  236. PHTHALYLSULFATHIAZOLE [Concomitant]
     Active Substance: PHTHALYLSULFATHIAZOLE
     Route: 048
  237. PHTHALYLSULFATHIAZOLE [Concomitant]
     Active Substance: PHTHALYLSULFATHIAZOLE
     Route: 048
  238. PHTHALYLSULFATHIAZOLE [Concomitant]
     Active Substance: PHTHALYLSULFATHIAZOLE
     Route: 048
  239. PHTHALYLSULFATHIAZOLE [Concomitant]
     Active Substance: PHTHALYLSULFATHIAZOLE
     Route: 048
  240. PHTHALYLSULFATHIAZOLE [Concomitant]
     Active Substance: PHTHALYLSULFATHIAZOLE
  241. PREDNISONE [Concomitant]
     Active Substance: PREDNISONE
     Indication: Rheumatoid arthritis
  242. PREDNISONE [Concomitant]
     Active Substance: PREDNISONE
     Indication: Psoriatic arthropathy
     Route: 042
  243. PREDNISONE [Concomitant]
     Active Substance: PREDNISONE
     Indication: Condition aggravated
     Route: 048
  244. PREDNISONE [Concomitant]
     Active Substance: PREDNISONE
     Route: 048
  245. PREDNISONE [Concomitant]
     Active Substance: PREDNISONE
     Route: 048
  246. PREDNISONE [Concomitant]
     Active Substance: PREDNISONE
     Route: 048
  247. PREDNISONE [Concomitant]
     Active Substance: PREDNISONE
     Route: 048
  248. PREDNISONE [Concomitant]
     Active Substance: PREDNISONE
     Route: 048
  249. PREGABALIN [Concomitant]
     Active Substance: PREGABALIN
     Indication: Product used for unknown indication
  250. PREGABALIN [Concomitant]
     Active Substance: PREGABALIN
     Route: 048
  251. PREGABALIN [Concomitant]
     Active Substance: PREGABALIN
  252. PSEUDOEPHEDRINE HYDROCHLORIDE [Concomitant]
     Active Substance: PSEUDOEPHEDRINE HYDROCHLORIDE
     Indication: Rheumatoid arthritis
  253. PSEUDOEPHEDRINE HYDROCHLORIDE [Concomitant]
     Active Substance: PSEUDOEPHEDRINE HYDROCHLORIDE
  254. PSEUDOEPHEDRINE HYDROCHLORIDE [Concomitant]
     Active Substance: PSEUDOEPHEDRINE HYDROCHLORIDE
  255. CETIRIZINE HYDROCHLORIDE\PSEUDOEPHEDRINE HYDROCHLORIDE [Concomitant]
     Active Substance: CETIRIZINE HYDROCHLORIDE\PSEUDOEPHEDRINE HYDROCHLORIDE
     Indication: Rheumatoid arthritis
     Dosage: TABLET (EXTENDED- RELEASE)
  256. CETIRIZINE HYDROCHLORIDE\PSEUDOEPHEDRINE HYDROCHLORIDE [Concomitant]
     Active Substance: CETIRIZINE HYDROCHLORIDE\PSEUDOEPHEDRINE HYDROCHLORIDE
     Route: 048
  257. CETIRIZINE HYDROCHLORIDE\PSEUDOEPHEDRINE HYDROCHLORIDE [Concomitant]
     Active Substance: CETIRIZINE HYDROCHLORIDE\PSEUDOEPHEDRINE HYDROCHLORIDE
  258. CETIRIZINE HYDROCHLORIDE\PSEUDOEPHEDRINE HYDROCHLORIDE [Concomitant]
     Active Substance: CETIRIZINE HYDROCHLORIDE\PSEUDOEPHEDRINE HYDROCHLORIDE
     Dosage: EXTENDED RELEASE
  259. CETIRIZINE HYDROCHLORIDE\PSEUDOEPHEDRINE HYDROCHLORIDE [Concomitant]
     Active Substance: CETIRIZINE HYDROCHLORIDE\PSEUDOEPHEDRINE HYDROCHLORIDE
  260. REMICADE [Concomitant]
     Active Substance: INFLIXIMAB
     Indication: Rheumatoid arthritis
  261. REMICADE [Concomitant]
     Active Substance: INFLIXIMAB
     Dosage: POWDER FOR SOLUTION INTRAVENOUS
     Route: 042
  262. REMICADE [Concomitant]
     Active Substance: INFLIXIMAB
     Dosage: POWDER FOR SOLUTION INTRAVENOUS
  263. REMICADE [Concomitant]
     Active Substance: INFLIXIMAB
     Route: 042
  264. REMICADE [Concomitant]
     Active Substance: INFLIXIMAB
     Route: 042
  265. RITUXIMAB [Concomitant]
     Active Substance: RITUXIMAB
     Indication: Rheumatoid arthritis
     Route: 042
  266. RITUXIMAB [Concomitant]
     Active Substance: RITUXIMAB
     Route: 058
  267. SULFASALAZINE [Concomitant]
     Active Substance: SULFASALAZINE
     Indication: Rheumatoid arthritis
     Route: 048
  268. SULFASALAZINE [Concomitant]
     Active Substance: SULFASALAZINE
     Route: 048
  269. SULFASALAZINE [Concomitant]
     Active Substance: SULFASALAZINE
     Route: 048
  270. SULFASALAZINE [Concomitant]
     Active Substance: SULFASALAZINE
     Route: 048
  271. SULFASALAZINE [Concomitant]
     Active Substance: SULFASALAZINE
     Route: 048
  272. SULFASALAZINE [Concomitant]
     Active Substance: SULFASALAZINE
     Route: 048
  273. SULFASALAZINE [Concomitant]
     Active Substance: SULFASALAZINE
     Route: 048
  274. SIMPONI [Concomitant]
     Active Substance: GOLIMUMAB
     Indication: Rheumatoid arthritis
     Dosage: SOLUTION SUBCUTANEOUS
     Route: 058
  275. SIMPONI [Concomitant]
     Active Substance: GOLIMUMAB
     Indication: Psoriatic arthropathy
     Route: 052
  276. SIMPONI [Concomitant]
     Active Substance: GOLIMUMAB
     Route: 042
  277. SIMPONI [Concomitant]
     Active Substance: GOLIMUMAB
     Dosage: SOLUTION SUBCUTANEOUS
     Route: 052
  278. SIMPONI [Concomitant]
     Active Substance: GOLIMUMAB
     Dosage: SOLUTION SUBCUTANEOUS
     Route: 042
  279. SIMPONI [Concomitant]
     Active Substance: GOLIMUMAB
     Route: 052
  280. SIMPONI [Concomitant]
     Active Substance: GOLIMUMAB
     Route: 058
  281. SIMPONI [Concomitant]
     Active Substance: GOLIMUMAB
  282. SIMPONI [Concomitant]
     Active Substance: GOLIMUMAB
     Dosage: SOLUTION SUBCUTANEOUS
     Route: 058
  283. STELARA [Concomitant]
     Active Substance: USTEKINUMAB
     Indication: Psoriatic arthropathy
     Dosage: SOLUTION SUBCUTANEOUS
     Route: 042
  284. STELARA [Concomitant]
     Active Substance: USTEKINUMAB
     Route: 058
  285. STELARA [Concomitant]
     Active Substance: USTEKINUMAB
     Dosage: SOLUTION SUBCUTANEOUS
     Route: 058
  286. STELARA [Concomitant]
     Active Substance: USTEKINUMAB
     Dosage: SOLUTION SUBCUTANEOUS
     Route: 058
  287. SULFAMETHOXAZOLE [Concomitant]
     Active Substance: SULFAMETHOXAZOLE
     Indication: Product used for unknown indication
  288. SULFAMETHOXAZOLE\TRIMETHOPRIM [Concomitant]
     Active Substance: SULFAMETHOXAZOLE\TRIMETHOPRIM
     Indication: Rheumatoid arthritis
  289. SULFAMETHOXAZOLE\TRIMETHOPRIM [Concomitant]
     Active Substance: SULFAMETHOXAZOLE\TRIMETHOPRIM
     Route: 067
  290. SULFASALAZINE [Concomitant]
     Active Substance: SULFASALAZINE
     Indication: Rheumatoid arthritis
     Route: 048
  291. SULFASALAZINE [Concomitant]
     Active Substance: SULFASALAZINE
     Route: 048
  292. SULFASALAZINE [Concomitant]
     Active Substance: SULFASALAZINE
     Route: 048
  293. SULFASALAZINE [Concomitant]
     Active Substance: SULFASALAZINE
     Route: 048
  294. SULFASALAZINE [Concomitant]
     Active Substance: SULFASALAZINE
     Route: 048
  295. SULFASALAZINE [Concomitant]
     Active Substance: SULFASALAZINE
     Route: 048
  296. SULFASALAZINE [Concomitant]
     Active Substance: SULFASALAZINE
  297. SULFASALAZINE [Concomitant]
     Active Substance: SULFASALAZINE
     Route: 048
  298. SULFASALAZINE [Concomitant]
     Active Substance: SULFASALAZINE
     Route: 048
  299. SULFASALAZINE [Concomitant]
     Active Substance: SULFASALAZINE
     Route: 048
  300. SULFASALAZINE [Concomitant]
     Active Substance: SULFASALAZINE
     Route: 048
  301. SULFASALAZINE [Concomitant]
     Active Substance: SULFASALAZINE
     Route: 048
  302. SULFASALAZINE [Concomitant]
     Active Substance: SULFASALAZINE
     Route: 048
  303. SULFASALAZINE [Concomitant]
     Active Substance: SULFASALAZINE
     Route: 048
  304. SULFASALAZINE [Concomitant]
     Active Substance: SULFASALAZINE
     Route: 048
  305. SULFASALAZINE [Concomitant]
     Active Substance: SULFASALAZINE
  306. SULFASALAZINE [Concomitant]
     Active Substance: SULFASALAZINE
  307. SULFASALAZINE [Concomitant]
     Active Substance: SULFASALAZINE
     Route: 048
  308. SULFASALAZINE [Concomitant]
     Active Substance: SULFASALAZINE
     Route: 048
  309. TRAMADOL HYDROCHLORIDE [Concomitant]
     Active Substance: TRAMADOL HYDROCHLORIDE
     Indication: Product used for unknown indication
  310. VITAMIN B12 [Concomitant]
     Active Substance: CYANOCOBALAMIN
     Indication: Product used for unknown indication
  311. VITAMIN C [Concomitant]
     Active Substance: ASCORBIC ACID
     Indication: Product used for unknown indication
     Route: 016
  312. DICLOFENAC DIETHYLAMINE [Concomitant]
     Active Substance: DICLOFENAC DIETHYLAMINE
     Indication: Product used for unknown indication
  313. PREDNISONE [Concomitant]
     Active Substance: PREDNISONE
     Indication: Rheumatoid arthritis
     Route: 048
  314. XELJANZ [Concomitant]
     Active Substance: TOFACITINIB CITRATE
     Indication: Rheumatoid arthritis
     Route: 048
  315. XELJANZ [Concomitant]
     Active Substance: TOFACITINIB CITRATE
     Route: 048
  316. XELJANZ [Concomitant]
     Active Substance: TOFACITINIB CITRATE
  317. XELJANZ [Concomitant]
     Active Substance: TOFACITINIB CITRATE
  318. XELJANZ [Concomitant]
     Active Substance: TOFACITINIB CITRATE
  319. XELJANZ [Concomitant]
     Active Substance: TOFACITINIB CITRATE
     Route: 048
  320. XELJANZ [Concomitant]
     Active Substance: TOFACITINIB CITRATE
  321. XELJANZ [Concomitant]
     Active Substance: TOFACITINIB CITRATE
  322. EMEND [Concomitant]
     Active Substance: APREPITANT
     Indication: Product used for unknown indication
     Route: 042
  323. ACETAMINOPHEN\BUTALBITAL [Concomitant]
     Active Substance: ACETAMINOPHEN\BUTALBITAL
     Indication: Rheumatoid arthritis
  324. DOXYCYCLINE [Concomitant]
     Active Substance: DOXYCYCLINE
     Indication: Product used for unknown indication
  325. PERIOGARD [Concomitant]
     Active Substance: CHLORHEXIDINE GLUCONATE
     Indication: Product used for unknown indication
     Route: 016
  326. PERIOGARD [Concomitant]
     Active Substance: CHLORHEXIDINE GLUCONATE
     Route: 002
  327. PERIOGARD [Concomitant]
     Active Substance: CHLORHEXIDINE GLUCONATE
  328. PERIOGARD [Concomitant]
     Active Substance: CHLORHEXIDINE GLUCONATE
  329. TUMS [Concomitant]
     Active Substance: CALCIUM CARBONATE
     Indication: Product used for unknown indication
  330. TUMS [Concomitant]
     Active Substance: CALCIUM CARBONATE
  331. CHLORHEXIDINE GLUCONATE [Concomitant]
     Active Substance: CHLORHEXIDINE GLUCONATE
     Indication: Product used for unknown indication
     Route: 002
  332. CHLORHEXIDINE GLUCONATE [Concomitant]
     Active Substance: CHLORHEXIDINE GLUCONATE
     Route: 048
  333. CHLORHEXIDINE GLUCONATE [Concomitant]
     Active Substance: CHLORHEXIDINE GLUCONATE
     Route: 016
  334. CHLORHEXIDINE GLUCONATE [Concomitant]
     Active Substance: CHLORHEXIDINE GLUCONATE
  335. COBAMAMIDE [Concomitant]
     Active Substance: COBAMAMIDE
     Indication: Product used for unknown indication
  336. DEXTROMETHORPHAN HYDROBROMIDE [Concomitant]
     Active Substance: DEXTROMETHORPHAN HYDROBROMIDE
     Indication: Product used for unknown indication
  337. DICLOFENAC DIETHYLAMINE [Concomitant]
     Active Substance: DICLOFENAC DIETHYLAMINE
     Indication: Product used for unknown indication
  338. IODINE [Concomitant]
     Active Substance: IODINE
     Indication: Product used for unknown indication
  339. CETIRIZINE HYDROCHLORIDE [Concomitant]
     Active Substance: CETIRIZINE HYDROCHLORIDE
     Indication: Rheumatoid arthritis
     Route: 048
  340. CETIRIZINE HYDROCHLORIDE [Concomitant]
     Active Substance: CETIRIZINE HYDROCHLORIDE
     Route: 048
  341. VITAMIN D3 [Concomitant]
     Active Substance: CHOLECALCIFEROL
     Indication: Product used for unknown indication
  342. SANDOZ ACETAMINOPHEN;OXYCODONE HYDROCHLORIDE [Concomitant]
     Indication: Product used for unknown indication
  343. CETIRIZINE HYDROCHLORIDE [Concomitant]
     Active Substance: CETIRIZINE HYDROCHLORIDE
     Indication: Product used for unknown indication
  344. CETRIMIDE [Concomitant]
     Active Substance: CETRIMIDE
     Indication: Product used for unknown indication
  345. CODEINE [Concomitant]
     Active Substance: CODEINE
     Indication: Product used for unknown indication
  346. DESOGESTREL AND ETHINYL ESTRADIOL [Concomitant]
     Active Substance: DESOGESTREL\ETHINYL ESTRADIOL
     Indication: Product used for unknown indication
  347. DILTIAZEM [Concomitant]
     Active Substance: DILTIAZEM
     Indication: Product used for unknown indication
     Route: 048
  348. DILTIAZEM HYDROCHLORIDE [Concomitant]
     Active Substance: DILTIAZEM HYDROCHLORIDE
     Indication: Product used for unknown indication
  349. FOSAPREPITANT [Concomitant]
     Active Substance: FOSAPREPITANT
     Indication: Product used for unknown indication
  350. HYDROXYCHLOROQUINE [Concomitant]
     Active Substance: HYDROXYCHLOROQUINE
     Indication: Rheumatoid arthritis
  351. HYDROXYCHLOROQUINE [Concomitant]
     Active Substance: HYDROXYCHLOROQUINE
     Route: 048
  352. HYDROXYCHLOROQUINE [Concomitant]
     Active Substance: HYDROXYCHLOROQUINE
     Route: 048
  353. IBUPROFEN [Concomitant]
     Active Substance: IBUPROFEN
     Indication: Product used for unknown indication
  354. KEVZARA [Concomitant]
     Active Substance: SARILUMAB
     Indication: Product used for unknown indication
  355. PANTOPRAZOLE [Concomitant]
     Active Substance: PANTOPRAZOLE
     Indication: Product used for unknown indication
  356. ZOPICLONE [Concomitant]
     Active Substance: ZOPICLONE
     Indication: Product used for unknown indication
  357. ACETAMINOPHEN AND CODEINE [Concomitant]
     Active Substance: ACETAMINOPHEN\CODEINE PHOSPHATE
     Indication: Product used for unknown indication
  358. ACETAMINOPHEN AND CODEINE [Concomitant]
     Active Substance: ACETAMINOPHEN\CODEINE PHOSPHATE
  359. ALENDRONIC ACID [Concomitant]
     Active Substance: ALENDRONIC ACID
     Indication: Product used for unknown indication
     Route: 048
  360. ALENDRONIC ACID [Concomitant]
     Active Substance: ALENDRONIC ACID
     Route: 048
  361. ISOSORBIDE DINITRATE [Concomitant]
     Active Substance: ISOSORBIDE DINITRATE
     Indication: Product used for unknown indication
     Route: 016
  362. HYRIMOZ [Concomitant]
     Active Substance: ADALIMUMAB-ADAZ
     Indication: Rheumatoid arthritis
     Route: 058
  363. HYRIMOZ [Concomitant]
     Active Substance: ADALIMUMAB-ADAZ
     Indication: Psoriatic arthropathy
  364. OXYCODONE HYDROCHLORIDE [Concomitant]
     Active Substance: OXYCODONE HYDROCHLORIDE
     Indication: Product used for unknown indication

REACTIONS (75)
  - C-reactive protein abnormal [Unknown]
  - Dry mouth [Unknown]
  - Duodenal ulcer perforation [Not Recovered/Not Resolved]
  - Facet joint syndrome [Unknown]
  - Fatigue [Not Recovered/Not Resolved]
  - Fibromyalgia [Unknown]
  - Folliculitis [Not Recovered/Not Resolved]
  - General physical health deterioration [Not Recovered/Not Resolved]
  - Glossodynia [Not Recovered/Not Resolved]
  - Hand deformity [Not Recovered/Not Resolved]
  - Helicobacter infection [Not Recovered/Not Resolved]
  - Hepatic enzyme increased [Not Recovered/Not Resolved]
  - Hypersensitivity [Not Recovered/Not Resolved]
  - Hypertension [Unknown]
  - Hypoaesthesia [Unknown]
  - Ill-defined disorder [Not Recovered/Not Resolved]
  - Impaired healing [Not Recovered/Not Resolved]
  - Infection [Not Recovered/Not Resolved]
  - Inflammation [Unknown]
  - Infusion related reaction [Not Recovered/Not Resolved]
  - Injury [Not Recovered/Not Resolved]
  - Insomnia [Not Recovered/Not Resolved]
  - Irritable bowel syndrome [Not Recovered/Not Resolved]
  - Joint range of motion decreased [Unknown]
  - Joint swelling [Not Recovered/Not Resolved]
  - Lip dry [Unknown]
  - Liver disorder [Unknown]
  - Malaise [Unknown]
  - Mobility decreased [Unknown]
  - Pruritus [Not Recovered/Not Resolved]
  - Psoriatic arthropathy [Unknown]
  - Pyrexia [Not Recovered/Not Resolved]
  - Rash [Not Recovered/Not Resolved]
  - Rheumatic fever [Unknown]
  - Rheumatoid arthritis [Not Recovered/Not Resolved]
  - Rheumatoid factor positive [Unknown]
  - Road traffic accident [Unknown]
  - Sciatica [Unknown]
  - Sinusitis [Not Recovered/Not Resolved]
  - Sleep disorder [Not Recovered/Not Resolved]
  - Sleep disorder due to general medical condition, insomnia type [Not Recovered/Not Resolved]
  - Stomatitis [Not Recovered/Not Resolved]
  - Swelling [Not Recovered/Not Resolved]
  - Swollen joint count increased [Unknown]
  - Synovitis [Not Recovered/Not Resolved]
  - Systemic lupus erythematosus [Not Recovered/Not Resolved]
  - Type 2 diabetes mellitus [Unknown]
  - Urticaria [Unknown]
  - Vomiting [Unknown]
  - Weight increased [Not Recovered/Not Resolved]
  - Wheezing [Unknown]
  - Wound [Not Recovered/Not Resolved]
  - Adverse event [Unknown]
  - Hospitalisation [Unknown]
  - Prescribed underdose [Unknown]
  - Abdominal discomfort [Not Recovered/Not Resolved]
  - Alopecia [Not Recovered/Not Resolved]
  - Anti-cyclic citrullinated peptide antibody positive [Not Recovered/Not Resolved]
  - Arthralgia [Not Recovered/Not Resolved]
  - Arthropathy [Not Recovered/Not Resolved]
  - Blister [Not Recovered/Not Resolved]
  - Condition aggravated [Not Recovered/Not Resolved]
  - Confusional state [Not Recovered/Not Resolved]
  - Contusion [Not Recovered/Not Resolved]
  - Discomfort [Not Recovered/Not Resolved]
  - Dyspnoea [Not Recovered/Not Resolved]
  - Gastrointestinal disorder [Not Recovered/Not Resolved]
  - Lower respiratory tract infection [Not Recovered/Not Resolved]
  - Muscle injury [Not Recovered/Not Resolved]
  - Nasopharyngitis [Not Recovered/Not Resolved]
  - Pain [Not Recovered/Not Resolved]
  - Pemphigus [Not Recovered/Not Resolved]
  - Pericarditis [Not Recovered/Not Resolved]
  - Peripheral swelling [Not Recovered/Not Resolved]
  - Off label use [Unknown]
